FAERS Safety Report 9188484 (Version 2)
Quarter: 2013Q3

REPORT INFORMATION
  Report Type: Spontaneous
  Country: MX (occurrence: MX)
  Receive Date: 20121205
  Receipt Date: 20130731
  Transmission Date: 20140515
  Serious: No
  Sender: FDA-Public Use
  Company Number: PHHY2012MX111319

PATIENT
  Age: 74 Year
  Sex: Male

DRUGS (2)
  1. DIOVAN [Suspect]
     Indication: CARDIAC HYPERTROPHY
     Dosage: 1 DF(80 MG), DAILY
     Route: 048
     Dates: start: 20120930, end: 201210
  2. DIOVAN [Suspect]
     Indication: OFF LABEL USE

REACTIONS (9)
  - Liver disorder [Recovered/Resolved]
  - Fluid retention [Recovered/Resolved]
  - Ascites [Recovered/Resolved]
  - Oedema peripheral [Recovered/Resolved]
  - Abdominal distension [Recovered/Resolved]
  - Swelling [Recovered/Resolved]
  - Dyspepsia [Recovered/Resolved]
  - Blood pressure decreased [Recovered/Resolved]
  - Dizziness [Recovered/Resolved]
